FAERS Safety Report 4331665-0 (Version None)
Quarter: 2004Q2

REPORT INFORMATION
  Report Type: 
  Country: None (occurrence: None)
  Receive Date: 20040401
  Receipt Date: 20040401
  Transmission Date: 20050107
  Serious: Yes (Hospitalization)
  Sender: FDA-Public Use
  Company Number: None

PATIENT
  Age: 28 Year
  Sex: Male
  Weight: 81.6475 kg

DRUGS (1)
  1. SMZ/TMP DS MUTUAL PHARM CORP [Suspect]
     Indication: SINUSITIS
     Dosage: DS BID PO
     Route: 048
     Dates: start: 20040224, end: 20040301

REACTIONS (4)
  - HYPERSENSITIVITY [None]
  - LEUKOPENIA [None]
  - PYREXIA [None]
  - THROMBOCYTOPENIA [None]
